FAERS Safety Report 4997177-6 (Version None)
Quarter: 2006Q2

REPORT INFORMATION
  Report Type: 
  Country: None (occurrence: None)
  Receive Date: 20060505
  Receipt Date: 20060505
  Transmission Date: 20061013
  Serious: Yes (Hospitalization)
  Sender: FDA-Public Use
  Company Number: None

PATIENT
  Sex: Male
  Weight: 89.8122 kg

DRUGS (12)
  1. LENALIDOMIDE  25MG  CELGENE [Suspect]
     Indication: MULTIPLE MYELOMA
     Dosage: 25MG    Q DAY X 21 DAYS   PO
     Route: 048
     Dates: start: 20060308, end: 20060328
  2. DEXAMETHASONE 4MG TAB [Suspect]
     Indication: MULTIPLE MYELOMA
     Dosage: 40MG   D 1-4, 9-12, 17-20    PO
     Route: 048
     Dates: start: 20060308, end: 20060327
  3. PROCARDIA XL [Concomitant]
  4. LEXAPRO [Concomitant]
  5. FLOMAX [Concomitant]
  6. DURAGESIC-100 [Concomitant]
  7. PRANDIN [Concomitant]
  8. COUMADIN [Concomitant]
  9. XANAX [Concomitant]
  10. PROTONIX [Concomitant]
  11. BACTRIM DS [Concomitant]
  12. SLIDING SCALE INSULIN [Concomitant]

REACTIONS (6)
  - ACTIVATED PARTIAL THROMBOPLASTIN TIME PROLONGED [None]
  - COUGH [None]
  - DYSPNOEA [None]
  - INTERNATIONAL NORMALISED RATIO INCREASED [None]
  - PULMONARY EMBOLISM [None]
  - VENOUS OCCLUSION [None]
